FAERS Safety Report 4749546-7 (Version None)
Quarter: 2005Q3

REPORT INFORMATION
  Report Type: 
  Country: None (occurrence: None)
  Receive Date: 20050822
  Receipt Date: 20050812
  Transmission Date: 20060218
  Serious: Yes (Hospitalization)
  Sender: FDA-Public Use
  Company Number: US-JNJFOC-20050603770

PATIENT
  Sex: Female
  Weight: 96.62 kg

DRUGS (19)
  1. FENTANYL [Suspect]
     Route: 062
     Dates: start: 20050201
  2. FENTANYL [Suspect]
     Route: 062
     Dates: start: 20050201
  3. CARDIZEM CD [Concomitant]
     Indication: HYPERTENSION
     Route: 048
     Dates: start: 19990101
  4. DIOVAN [Concomitant]
     Indication: HYPERTENSION
     Route: 048
     Dates: start: 19990101
  5. ZOLOFT [Concomitant]
     Indication: DEPRESSION
     Route: 048
     Dates: start: 20020101
  6. COLACE [Concomitant]
     Route: 048
  7. FUROSEMIDE [Concomitant]
     Indication: DIURETIC THERAPY
     Route: 048
     Dates: start: 20050401
  8. CELEBREX [Concomitant]
     Indication: ANTIINFLAMMATORY THERAPY
     Route: 048
     Dates: start: 20040701
  9. TOPROL-XL [Concomitant]
     Indication: HYPERTENSION
     Route: 048
     Dates: start: 20040701
  10. COUMADIN [Concomitant]
     Indication: THROMBOSIS PROPHYLAXIS
     Dosage: WAS ALSO ON DRUG FOR 5 YEARS PRIOR TO 2000
     Route: 048
     Dates: start: 20010101
  11. ALDACTONE [Concomitant]
     Indication: HYPERTENSION
     Route: 048
     Dates: start: 20050401
  12. SINGULAIR [Concomitant]
     Indication: ASTHMA
     Route: 048
  13. DILANTIN [Concomitant]
     Indication: EPILEPSY
     Route: 048
  14. POTASSIUM CHLORIDE [Concomitant]
     Route: 048
     Dates: start: 20010101
  15. ASPIRIN [Concomitant]
     Indication: PROPHYLAXIS
     Route: 048
  16. SYNTHROID [Concomitant]
     Indication: HYPOTHYROIDISM
     Route: 048
     Dates: start: 20050501
  17. ZANAFLEX [Concomitant]
     Indication: MUSCLE SPASMS
  18. NEURONTIN [Concomitant]
  19. KLONOPIN [Concomitant]
     Dosage: 1 MG, 1 TO 2 TIMES DAILY

REACTIONS (3)
  - APPLICATION SITE ERYTHEMA [None]
  - APPLICATION SITE IRRITATION [None]
  - CARDIAC FAILURE CONGESTIVE [None]
